FAERS Safety Report 26131958 (Version 2)
Quarter: 2025Q4

REPORT INFORMATION
  Report Type: Spontaneous
  Country: KZ (occurrence: KZ)
  Receive Date: 20251208
  Receipt Date: 20251217
  Transmission Date: 20260117
  Serious: Yes (Death)
  Sender: ABBVIE
  Company Number: KZ-ABBVIE-6578501

PATIENT
  Age: 3 Year
  Sex: Female

DRUGS (1)
  1. SEVOFLURANE [Suspect]
     Active Substance: SEVOFLURANE
     Indication: Sedative therapy
     Route: 055
     Dates: start: 20241030, end: 20241030

REACTIONS (2)
  - Brain oedema [Fatal]
  - Hypoxia [Fatal]

NARRATIVE: CASE EVENT DATE: 20241030
